FAERS Safety Report 11482766 (Version 1)
Quarter: 2015Q3

REPORT INFORMATION
  Report Type: Spontaneous
  Country: US (occurrence: None)
  Receive Date: 20150908
  Receipt Date: 20150908
  Transmission Date: 20151125
  Serious: Yes (Disabling)
  Sender: FDA-Public Use
  Company Number: None

PATIENT
  Age: 68 Year
  Sex: Male
  Weight: 75.3 kg

DRUGS (3)
  1. SIMVASTATIN 20MG [Suspect]
     Active Substance: SIMVASTATIN
     Indication: BLOOD CHOLESTEROL INCREASED
     Dosage: 1/2 TABLET
     Route: 048
     Dates: start: 20130306, end: 20150306
  2. CALCIUM [Concomitant]
     Active Substance: CALCIUM
  3. V-D [Concomitant]

REACTIONS (2)
  - Gynaecomastia [None]
  - Blood oestrogen increased [None]

NARRATIVE: CASE EVENT DATE: 20150904
